FAERS Safety Report 7130727-2 (Version None)
Quarter: 2010Q4

REPORT INFORMATION
  Report Type: 
  Country: None (occurrence: None)
  Receive Date: 20101201
  Receipt Date: 20101116
  Transmission Date: 20110411
  Serious: Yes (Hospitalization, Other)
  Sender: FDA-Public Use
  Company Number: US-ROCHE-722610

PATIENT
  Sex: Female
  Weight: 68 kg

DRUGS (2)
  1. ACCUTANE [Suspect]
     Route: 065
     Dates: start: 19951101, end: 19960901
  2. CONTRACEPTIVE [Concomitant]
     Dosage: REPORTED AS BIRTH CONTROL (MEDICATION)

REACTIONS (12)
  - ANAEMIA [None]
  - CROHN'S DISEASE [None]
  - DEPRESSION [None]
  - DIVERTICULUM [None]
  - GASTROINTESTINAL INJURY [None]
  - GASTROOESOPHAGEAL REFLUX DISEASE [None]
  - HAEMATEMESIS [None]
  - INFLAMMATORY BOWEL DISEASE [None]
  - INSOMNIA [None]
  - IRRITABLE BOWEL SYNDROME [None]
  - SMALL INTESTINAL OBSTRUCTION [None]
  - SOMNOLENCE [None]
